FAERS Safety Report 13224451 (Version 1)
Quarter: 2017Q1

REPORT INFORMATION
  Report Type: Spontaneous
  Country: IR (occurrence: IR)
  Receive Date: 20170212
  Receipt Date: 20170212
  Transmission Date: 20170428
  Serious: Yes (Death, Hospitalization)
  Sender: FDA-Public Use
  Company Number: IR-IPCA LABORATORIES LIMITED-IPC201702-000023

PATIENT
  Age: 17 Year
  Sex: Female

DRUGS (1)
  1. TRAMADOL. [Suspect]
     Active Substance: TRAMADOL

REACTIONS (5)
  - Intentional overdose [Unknown]
  - Cardiac arrest [Fatal]
  - Cardio-respiratory arrest [Unknown]
  - Generalised tonic-clonic seizure [Unknown]
  - Completed suicide [Fatal]
